FAERS Safety Report 13518531 (Version 2)
Quarter: 2017Q3

REPORT INFORMATION
  Report Type: Report from Study
  Country: BR (occurrence: BR)
  Receive Date: 20170505
  Receipt Date: 20170801
  Transmission Date: 20171127
  Serious: Yes (Other)
  Sender: FDA-Public Use
  Company Number: PHHY2017BR064760

PATIENT
  Sex: Female
  Weight: 72 kg

DRUGS (5)
  1. DIOVAN HCT [Suspect]
     Active Substance: HYDROCHLOROTHIAZIDE\VALSARTAN
     Indication: HYPERTENSION
     Dosage: 1 DF, QD (10 YEARS AGO)
     Route: 048
  2. DIOVAN HCT [Suspect]
     Active Substance: HYDROCHLOROTHIAZIDE\VALSARTAN
     Dosage: 0.5 DF (HYDROCHLOROTHIAZIDE 12.5 MG AND VALSARTAN 160 MG), QD (5 OR 6 YEARS AGO)
     Route: 048
  3. RUSOVAS [Concomitant]
     Active Substance: ROSUVASTATIN
     Indication: BLOOD CHOLESTEROL INCREASED
     Dosage: 1 DF, QD (FROM 2 YEARS AGO)
     Route: 048
  4. PURAN [Concomitant]
     Active Substance: LEVOTHYROXINE SODIUM
     Indication: THYROID DISORDER
     Dosage: 1 DF, QD (FROM 30 YEARS AGO)
     Route: 048
  5. VALSARTAN. [Concomitant]
     Active Substance: VALSARTAN
     Indication: HYPERTENSION
     Dosage: 1 DF, QD (FROM 1 YEAR AGO)
     Route: 048

REACTIONS (12)
  - Stomatitis [Unknown]
  - Dysgeusia [Unknown]
  - Salivary hypersecretion [Unknown]
  - Liver disorder [Unknown]
  - Dry mouth [Recovering/Resolving]
  - Wrong technique in product usage process [Unknown]
  - Abdominal distension [Recovering/Resolving]
  - Tongue discomfort [Unknown]
  - Gait disturbance [Unknown]
  - Hypoaesthesia [Not Recovered/Not Resolved]
  - Swollen tongue [Unknown]
  - Asthenia [Unknown]
